FAERS Safety Report 8015615-1 (Version None)
Quarter: 2011Q4

REPORT INFORMATION
  Report Type: 
  Country: None (occurrence: None)
  Receive Date: 20111230
  Receipt Date: 20111220
  Transmission Date: 20120403
  Serious: Yes (Hospitalization)
  Sender: FDA-Public Use
  Company Number: US-ELI_LILLY_AND_COMPANY-US201009005714

PATIENT
  Sex: Female

DRUGS (22)
  1. ANALGESICS [Concomitant]
     Indication: CERVICAL VERTEBRAL FRACTURE
  2. VOLTAREN [Concomitant]
  3. OPIOIDS [Concomitant]
  4. FORTEO [Suspect]
     Dosage: 20 UG, DAILY (1/D)
     Route: 058
  5. PERCOCET [Concomitant]
  6. LISINOPRIL [Concomitant]
  7. ANTIBIOTICS [Concomitant]
     Indication: URINARY TRACT INFECTION
  8. ALDACTONE [Concomitant]
  9. CELEXA [Concomitant]
  10. FORTEO [Suspect]
     Dosage: 20 UG, QD
     Route: 058
     Dates: end: 20110901
  11. NEXIUM [Concomitant]
  12. FORTEO [Suspect]
     Dosage: 20 UG, DAILY (1/D)
     Route: 058
  13. FORTEO [Suspect]
     Dosage: 20 UG, QD
     Route: 058
  14. ASPIRIN [Concomitant]
  15. SYNTHROID [Concomitant]
     Indication: THYROID DISORDER
  16. ANTIDEPRESSANTS [Concomitant]
  17. FORTEO [Suspect]
     Indication: OSTEOPOROSIS
     Dosage: 20 UG, DAILY (1/D)
     Route: 058
     Dates: start: 20100827
  18. FORTEO [Suspect]
     Dosage: 20 UG, QD
     Route: 058
     Dates: end: 20111104
  19. LASIX [Concomitant]
  20. CALTRATE PLUS                      /06018001/ [Concomitant]
  21. SIMVASTATIN [Concomitant]
  22. CALCIUM ACETATE [Concomitant]

REACTIONS (27)
  - SKIN DISORDER [None]
  - PAIN [None]
  - UNDERDOSE [None]
  - UPPER LIMB FRACTURE [None]
  - HAND FRACTURE [None]
  - INJECTION SITE HAEMATOMA [None]
  - HEAD INJURY [None]
  - SOFT TISSUE INJURY [None]
  - PAIN IN EXTREMITY [None]
  - OROPHARYNGEAL PAIN [None]
  - SKIN INJURY [None]
  - FALL [None]
  - NECK PAIN [None]
  - MEMORY IMPAIRMENT [None]
  - DECREASED ACTIVITY [None]
  - RADIUS FRACTURE [None]
  - MUSCULAR WEAKNESS [None]
  - HYPOPHAGIA [None]
  - CONTUSION [None]
  - COUGH [None]
  - DUODENAL STENOSIS [None]
  - PRURITUS [None]
  - NASOPHARYNGITIS [None]
  - MALAISE [None]
  - DYSPNOEA [None]
  - URINARY TRACT INFECTION [None]
  - FACE INJURY [None]
